FAERS Safety Report 7178321-1 (Version None)
Quarter: 2010Q4

REPORT INFORMATION
  Report Type: 
  Country: None (occurrence: None)
  Receive Date: 20101220
  Receipt Date: 20101207
  Transmission Date: 20110411
  Serious: Yes (Hospitalization)
  Sender: FDA-Public Use
  Company Number: US-ELI_LILLY_AND_COMPANY-US201011001406

PATIENT
  Sex: Female

DRUGS (12)
  1. CYMBALTA [Suspect]
     Indication: MAJOR DEPRESSION
     Dosage: 60 MG, UNK
     Dates: start: 20100101
  2. CYMBALTA [Suspect]
     Dosage: 30 MG, UNK
  3. BUSPAR [Concomitant]
  4. KLONOPIN [Concomitant]
  5. PLAVIX [Concomitant]
  6. BENTYL [Concomitant]
  7. VICODIN [Concomitant]
  8. LOPRESSOR [Concomitant]
  9. NITROGLYCERIN [Concomitant]
  10. ZOFRAN [Concomitant]
  11. ZANTAC [Concomitant]
  12. ANTIVERT [Concomitant]

REACTIONS (1)
  - BLOOD SODIUM DECREASED [None]
